FAERS Safety Report 18043506 (Version 11)
Quarter: 2020Q3

REPORT INFORMATION
  Report Type: Spontaneous
  Country: US (occurrence: US)
  Receive Date: 20200720
  Receipt Date: 20200915
  Transmission Date: 20201103
  Serious: Yes (Hospitalization, Other)
  Sender: FDA-Public Use
  Company Number: US-UNITED THERAPEUTICS-UNT-2020-009267

PATIENT
  Age: 82 Year
  Sex: Female
  Weight: 75.28 kg

DRUGS (6)
  1. REMODULIN [Suspect]
     Active Substance: TREPROSTINIL
     Dosage: 0.041 ?G/KG, CONTINUING
     Route: 058
  2. REMODULIN [Suspect]
     Active Substance: TREPROSTINIL
     Dosage: 0.036 ?G/KG, CONTINUING
     Route: 058
  3. REMODULIN [Suspect]
     Active Substance: TREPROSTINIL
     Indication: PULMONARY ARTERIAL HYPERTENSION
     Dosage: UNK, CONTINUING
     Route: 058
     Dates: start: 20131029
  4. REMODULIN [Suspect]
     Active Substance: TREPROSTINIL
     Indication: PULMONARY ARTERIAL HYPERTENSION
     Dosage: UNK, CONTINUING
     Route: 058
     Dates: start: 20131029
  5. REMODULIN [Suspect]
     Active Substance: TREPROSTINIL
     Dosage: 0.041 ?G/KG, CONTINUING
     Route: 058
  6. UPTRAVI [Suspect]
     Active Substance: SELEXIPAG
     Indication: PRODUCT USED FOR UNKNOWN INDICATION
     Dosage: 1400 ?G, UNK
     Route: 065

REACTIONS (19)
  - Myocardial infarction [Unknown]
  - Plasma cell myeloma [Unknown]
  - Nerve injury [Unknown]
  - Arthralgia [Not Recovered/Not Resolved]
  - Diarrhoea [Unknown]
  - Insomnia [Unknown]
  - Nausea [Unknown]
  - Fall [Recovered/Resolved with Sequelae]
  - Dementia [Unknown]
  - Limb injury [Unknown]
  - Therapy cessation [Unknown]
  - Pruritus [Unknown]
  - Headache [Unknown]
  - Myalgia [Unknown]
  - Swelling [Unknown]
  - Vomiting [Unknown]
  - Confusional state [Unknown]
  - Pain in extremity [Unknown]
  - Spinal column injury [Unknown]

NARRATIVE: CASE EVENT DATE: 20200617
